FAERS Safety Report 8057667-9 (Version None)
Quarter: 2012Q1

REPORT INFORMATION
  Report Type: 
  Country: None (occurrence: None)
  Receive Date: 20120120
  Receipt Date: 20120110
  Transmission Date: 20120608
  Serious: No
  Sender: FDA-Public Use
  Company Number: US-BIOGENIDEC-2012BI001171

PATIENT
  Age: 38 Year
  Sex: Female

DRUGS (2)
  1. RITALIN [Concomitant]
  2. TYSABRI [Suspect]
     Indication: MULTIPLE SCLEROSIS
     Route: 042
     Dates: start: 20111219

REACTIONS (7)
  - HYPERHIDROSIS [None]
  - ABDOMINAL PAIN UPPER [None]
  - LETHARGY [None]
  - ASTHENIA [None]
  - FEELING HOT [None]
  - NAUSEA [None]
  - MALAISE [None]
